FAERS Safety Report 9928601 (Version 2)
Quarter: 2014Q1

REPORT INFORMATION
  Report Type: Spontaneous
  Country: CH (occurrence: CH)
  Receive Date: 20140227
  Receipt Date: 20140306
  Transmission Date: 20141002
  Serious: Yes (Hospitalization, Other)
  Sender: FDA-Public Use
  Company Number: CH-009507513-1402CHE011160

PATIENT
  Age: 43 Year
  Sex: Female

DRUGS (2)
  1. REMERON [Suspect]
     Dosage: 30 DOSAGE FORM, 900 MG, ONCE
     Route: 048
     Dates: start: 20131206, end: 20131206
  2. DIAZEPAM [Suspect]
     Dosage: 25 DOSAGE FORM, 250 MG, ONCE
     Route: 048
     Dates: start: 20131206, end: 20131206

REACTIONS (4)
  - Intentional overdose [Recovered/Resolved]
  - Blood creatine phosphokinase increased [Recovered/Resolved]
  - Suicide attempt [Recovered/Resolved]
  - Somnolence [Recovered/Resolved]
